FAERS Safety Report 7797549-0 (Version None)
Quarter: 2011Q4

REPORT INFORMATION
  Report Type: 
  Country: None (occurrence: None)
  Receive Date: 20111004
  Receipt Date: 20111004
  Transmission Date: 20120403
  Serious: Yes (Hospitalization)
  Sender: FDA-Public Use
  Company Number: None

PATIENT
  Age: 76 Year
  Sex: Female
  Weight: 61.2356 kg

DRUGS (8)
  1. GC1008 [Suspect]
     Dosage: INTRAVENOUS
  2. LEVOTHYROXINE SODIUM [Concomitant]
  3. IRON SUPPLEMENT [Concomitant]
  4. PRILOSEC [Concomitant]
  5. FRESOLIMUMAB [Suspect]
     Indication: SCLERODERMA
     Dosage: 1 MG/KG, 1 OF 2 DOSES
     Dates: start: 20110913
  6. HYDROCHLOROTHIAZIDE [Concomitant]
  7. LISINOPRIL [Concomitant]
  8. ASPIRIN [Concomitant]

REACTIONS (6)
  - ASTHENIA [None]
  - GASTRIC ANTRAL VASCULAR ECTASIA [None]
  - DYSPNOEA [None]
  - DIZZINESS [None]
  - HYPOTENSION [None]
  - HAEMOGLOBIN DECREASED [None]
